FAERS Safety Report 6197700-2 (Version None)
Quarter: 2009Q2

REPORT INFORMATION
  Report Type: 
  Country: None (occurrence: None)
  Receive Date: 20090514
  Receipt Date: 20090105
  Transmission Date: 20091009
  Serious: Yes (Hospitalization)
  Sender: FDA-Public Use
  Company Number: WAES 0901USA00302

PATIENT

DRUGS (1)
  1. HYDRODIURIL [Suspect]

REACTIONS (1)
  - BLOOD SODIUM DECREASED [None]
